FAERS Safety Report 7898324-9 (Version None)
Quarter: 2011Q4

REPORT INFORMATION
  Report Type: 
  Country: None (occurrence: None)
  Receive Date: 20111103
  Receipt Date: 20111017
  Transmission Date: 20120403
  Serious: Yes (Hospitalization)
  Sender: FDA-Public Use
  Company Number: 004302

PATIENT
  Age: 80 Year
  Sex: Male
  Weight: 42 kg

DRUGS (5)
  1. PANSPORIN T (CEFOTIAM HEXETIL HYDROCHLORIDE) [Concomitant]
  2. MACUGEN [Suspect]
     Indication: AGE-RELATED MACULAR DEGENERATION
     Dosage: 0.3 MG, INTRAOCULAR
     Route: 031
     Dates: start: 20090316, end: 20091217
  3. ADONA (CARBAZOCHROME SODIUM SULFONATE [Concomitant]
  4. BESTRON (CEFMENOXIME HYDROCHLORIDE) [Concomitant]
  5. GATIFLOXACIN [Concomitant]

REACTIONS (1)
  - VITREOUS HAEMORRHAGE [None]
